FAERS Safety Report 14067611 (Version 10)
Quarter: 2018Q2

REPORT INFORMATION
  Report Type: Other
  Country: GB (occurrence: GB)
  Receive Date: 20171010
  Receipt Date: 20180503
  Transmission Date: 20180711
  Serious: Yes (Hospitalization, Other)
  Sender: FDA-Public Use
  Company Number: GB-MACLEODS PHARMACEUTICALS US LTD-MAC2017006100

PATIENT

DRUGS (14)
  1. MST CONTINUS [Suspect]
     Active Substance: MORPHINE SULFATE
     Indication: BACK PAIN
     Dosage: 10 MG, BID, MOST RECENT DOSE TAKEN ON 15-AUG-2017, TIME INTERVAL BETWEEN BEGINNING OF DRUG ADMINISTR
     Route: 048
     Dates: start: 20170710
  2. MST CONTINUS [Suspect]
     Active Substance: MORPHINE SULFATE
     Dosage: UNK
     Route: 065
  3. BUMETANIDE. [Concomitant]
     Active Substance: BUMETANIDE
     Dosage: UNK
     Route: 048
  4. SALBUTAMOL [Concomitant]
     Active Substance: ALBUTEROL
     Indication: ASTHMA
     Dosage: UNK ?G, PRN AS NECESSARY, MCG PRN
     Route: 048
     Dates: start: 20121224
  5. BUMETANIDE. [Concomitant]
     Active Substance: BUMETANIDE
     Dosage: 2 MG, BID
     Route: 048
  6. FORMOTEROL [Concomitant]
     Active Substance: FORMOTEROL
     Indication: PRODUCT USED FOR UNKNOWN INDICATION
     Dosage: UNK
     Route: 065
  7. TAMSULOSIN [Suspect]
     Active Substance: TAMSULOSIN
     Indication: PRODUCT USED FOR UNKNOWN INDICATION
     Dosage: 400 ?G, QD, MOST RECENT DOSE TAKEN ON 15 AUG 2017
     Route: 065
     Dates: start: 20110805
  8. BUMETANIDE. [Concomitant]
     Active Substance: BUMETANIDE
     Dosage: 4 MG, QD
     Route: 048
  9. LCZ696 [Suspect]
     Active Substance: SACUBITRIL\VALSARTAN
     Indication: CARDIAC FAILURE
     Dosage: UNK, CODE NOT BROKEN
     Route: 048
     Dates: start: 20151204
  10. FUTICASONE, FORMOTEROL [Concomitant]
     Indication: ASTHMA
     Dosage: 500 ?G, QD, 250 ?G BID
     Route: 065
     Dates: start: 20110318
  11. VALSARTAN, SACUBITRIL [Suspect]
     Active Substance: SACUBITRIL\VALSARTAN
     Indication: CARDIAC FAILURE
     Dosage: UNK, LCZ696
     Route: 048
     Dates: start: 20151204
  12. BUMETANIDE. [Concomitant]
     Active Substance: BUMETANIDE
     Indication: CARDIAC FAILURE
     Dosage: 1 MG, TID
     Route: 048
     Dates: start: 20170809, end: 20170816
  13. BUMETANIDE. [Concomitant]
     Active Substance: BUMETANIDE
     Dosage: 3 MG, QD
     Route: 048
     Dates: start: 20170809, end: 20170816
  14. FLUTICASONE. [Concomitant]
     Active Substance: FLUTICASONE
     Indication: ASTHMA
     Dosage: 250 ?G, BID
     Route: 065
     Dates: start: 20110318

REACTIONS (4)
  - Asthma [Recovered/Resolved]
  - Lower respiratory tract infection [Unknown]
  - Fall [Recovered/Resolved]
  - Lethargy [Recovered/Resolved]

NARRATIVE: CASE EVENT DATE: 20170815
